FAERS Safety Report 22916343 (Version 3)
Quarter: 2023Q4

REPORT INFORMATION
  Report Type: Report from Study
  Country: US (occurrence: US)
  Receive Date: 20230907
  Receipt Date: 20231215
  Transmission Date: 20240110
  Serious: Yes (Other)
  Sender: FDA-Public Use
  Company Number: US-002147023-NVSC2023US192955

PATIENT
  Sex: Female

DRUGS (2)
  1. LEQVIO [Suspect]
     Active Substance: INCLISIRAN SODIUM
     Indication: Product used for unknown indication
     Dosage: UNK
     Route: 058
     Dates: start: 20230524
  2. LEQVIO [Suspect]
     Active Substance: INCLISIRAN SODIUM
     Dosage: UNK
     Route: 058
     Dates: start: 20230824

REACTIONS (15)
  - Basal cell carcinoma [Unknown]
  - Diarrhoea haemorrhagic [Unknown]
  - Asthenia [Unknown]
  - Fatigue [Unknown]
  - Movement disorder [Recovering/Resolving]
  - Epigastric discomfort [Unknown]
  - Pain in extremity [Unknown]
  - Back pain [Unknown]
  - Dyspepsia [Unknown]
  - Dizziness [Unknown]
  - Dyspnoea [Unknown]
  - Anaemia [Unknown]
  - Sluggishness [Unknown]
  - Weight decreased [Unknown]
  - General physical health deterioration [Unknown]
